FAERS Safety Report 18611644 (Version 1)
Quarter: 2020Q4

REPORT INFORMATION
  Report Type: Spontaneous
  Country: US (occurrence: US)
  Receive Date: 20201214
  Receipt Date: 20201214
  Transmission Date: 20210114
  Serious: No
  Sender: FDA-Public Use
  Company Number: US-TEVA-2020-US-1859131

PATIENT
  Age: 65 Year
  Sex: Female
  Weight: 79.36 kg

DRUGS (4)
  1. PREMARIN [Concomitant]
     Active Substance: ESTROGENS, CONJUGATED
  2. FEXOFENADINE [Suspect]
     Active Substance: FEXOFENADINE HYDROCHLORIDE
     Indication: HYPERSENSITIVITY
     Dosage: FEXOFENADINE 180 MG 571 (FEXOFENADINE)
     Route: 048
     Dates: start: 2018
  3. FEXOFENADINE [Suspect]
     Active Substance: FEXOFENADINE HYDROCHLORIDE
     Dosage: 360 MILLIGRAM DAILY;
     Route: 048
     Dates: start: 20201204, end: 20201204
  4. VITAMIN D NOS [Concomitant]
     Active Substance: VITAMIN D NOS

REACTIONS (3)
  - Psychomotor hyperactivity [Recovered/Resolved]
  - Product administered to patient of inappropriate age [Unknown]
  - Extra dose administered [Unknown]

NARRATIVE: CASE EVENT DATE: 2020
